FAERS Safety Report 11363367 (Version 3)
Quarter: 2016Q4

REPORT INFORMATION
  Report Type: Report from Study
  Country: ZA (occurrence: ZA)
  Receive Date: 20150811
  Receipt Date: 20161004
  Transmission Date: 20170206
  Serious: Yes (Other)
  Sender: FDA-Public Use
  Company Number: ZA-ROCHE-1613625

PATIENT
  Age: 54 Year
  Sex: Male

DRUGS (3)
  1. XOLAIR [Suspect]
     Active Substance: OMALIZUMAB
     Route: 058
     Dates: start: 20160915
  2. XOLAIR [Suspect]
     Active Substance: OMALIZUMAB
     Indication: CHRONIC SPONTANEOUS URTICARIA
     Route: 058
     Dates: start: 20150626
  3. XOLAIR [Suspect]
     Active Substance: OMALIZUMAB
     Route: 058

REACTIONS (7)
  - Depressed mood [Unknown]
  - Angioedema [Unknown]
  - Palpitations [Recovered/Resolved]
  - Urticaria [Unknown]
  - Incorrect dose administered [Unknown]
  - Blood pressure decreased [Unknown]
  - Insomnia [Recovered/Resolved]

NARRATIVE: CASE EVENT DATE: 20150626
